FAERS Safety Report 4717971-6 (Version None)
Quarter: 2005Q3

REPORT INFORMATION
  Report Type: 
  Country: None (occurrence: None)
  Receive Date: 20050718
  Receipt Date: 20050202
  Transmission Date: 20060218
  Serious: No
  Sender: FDA-Public Use
  Company Number: 2005000260

PATIENT
  Age: 82 Year
  Sex: Female
  Weight: 40.8237 kg

DRUGS (3)
  1. TARCEVA [Suspect]
     Indication: NEOPLASM MALIGNANT
     Dosage: 150 MG (QD), ORAL
     Route: 048
  2. UNK [Concomitant]
  3. BLOOD PRESSURE MEDICINE [Concomitant]

REACTIONS (3)
  - CHILLS [None]
  - FATIGUE [None]
  - RASH [None]
